FAERS Safety Report 11217984 (Version 2)
Quarter: 2015Q2

REPORT INFORMATION
  Report Type: Spontaneous
  Country: US (occurrence: US)
  Receive Date: 20150625
  Receipt Date: 20150626
  Transmission Date: 20150821
  Serious: Yes (Death)
  Sender: FDA-Public Use
  Company Number: US-ROCHE-1598372

PATIENT
  Sex: Female

DRUGS (3)
  1. MULTAQ [Concomitant]
     Active Substance: DRONEDARONE
  2. PROPAFENONE. [Concomitant]
     Active Substance: PROPAFENONE
  3. NUTROPIN AQ [Suspect]
     Active Substance: SOMATROPIN
     Indication: DWARFISM
     Route: 058
     Dates: start: 200511

REACTIONS (1)
  - Death [Fatal]
